FAERS Safety Report 9893657 (Version 2)
Quarter: 2014Q1

REPORT INFORMATION
  Report Type: Spontaneous
  Country: DE (occurrence: DE)
  Receive Date: 20140213
  Receipt Date: 20140325
  Transmission Date: 20141002
  Serious: Yes (Other)
  Sender: FDA-Public Use
  Company Number: DE-009507513-1402DEU003997

PATIENT
  Age: 20 Year
  Sex: Female

DRUGS (1)
  1. NUVARING [Suspect]
     Dosage: UNK
     Route: 067
     Dates: start: 201002

REACTIONS (2)
  - Mammoplasty [Unknown]
  - Venous thrombosis limb [Unknown]
